FAERS Safety Report 5963533-2 (Version None)
Quarter: 2008Q4

REPORT INFORMATION
  Report Type: 
  Country: None (occurrence: None)
  Receive Date: 20081124
  Receipt Date: 20081113
  Transmission Date: 20090506
  Serious: Yes (Other)
  Sender: FDA-Public Use
  Company Number: DE-GENENTECH-271511

PATIENT
  Sex: Female

DRUGS (1)
  1. XOLAIR [Suspect]
     Indication: URTICARIA
     Dosage: 300 MG, 1/MONTH
     Route: 058
     Dates: start: 20070101

REACTIONS (1)
  - PAROSMIA [None]
